FAERS Safety Report 7417249-6 (Version None)
Quarter: 2011Q2

REPORT INFORMATION
  Report Type: 
  Country: None (occurrence: None)
  Receive Date: 20110415
  Receipt Date: 20110411
  Transmission Date: 20111010
  Serious: Yes (Hospitalization)
  Sender: FDA-Public Use
  Company Number: US-BAYER-2011-031420

PATIENT
  Sex: Female
  Weight: 117 kg

DRUGS (5)
  1. VERAMPIL [Concomitant]
     Indication: HYPERTENSION
  2. PRAVASTATIN [Concomitant]
     Indication: BLOOD CHOLESTEROL ABNORMAL
  3. YASMIN [Suspect]
     Indication: PRODUCT USED FOR UNKNOWN INDICATION
  4. YAZ [Suspect]
     Indication: CONTRACEPTION
     Dosage: UNK, QD
     Dates: start: 20070101, end: 20070601
  5. METFORMIN [Concomitant]
     Indication: DIABETES MELLITUS

REACTIONS (1)
  - PULMONARY EMBOLISM [None]
